FAERS Safety Report 10511348 (Version 1)
Quarter: 2014Q4

REPORT INFORMATION
  Report Type: Spontaneous
  Country: US (occurrence: None)
  Receive Date: 20141009
  Receipt Date: 20141009
  Transmission Date: 20150528
  Serious: No
  Sender: FDA-Public Use
  Company Number: None

PATIENT
  Age: 76 Year
  Sex: Male

DRUGS (4)
  1. MELPHALAN [Concomitant]
     Active Substance: MELPHALAN
  2. THALOMID [Suspect]
     Active Substance: THALIDOMIDE
     Indication: PLASMA CELL MYELOMA
     Route: 048
     Dates: start: 20131218
  3. PREDNISONE. [Concomitant]
     Active Substance: PREDNISONE
  4. TIMOLOL MALEATE OPHT DROP [Concomitant]

REACTIONS (4)
  - Compression fracture [None]
  - Fatigue [None]
  - Neutropenia [None]
  - Infection [None]

NARRATIVE: CASE EVENT DATE: 20140924
